FAERS Safety Report 22120810 (Version 1)
Quarter: 2023Q1

REPORT INFORMATION
  Report Type: Spontaneous
  Country: US (occurrence: US)
  Receive Date: 20230321
  Receipt Date: 20230321
  Transmission Date: 20230418
  Serious: Yes (Hospitalization)
  Sender: FDA-Public Use
  Company Number: US-TORRENT-00012575

PATIENT
  Age: 46 Year
  Sex: Female

DRUGS (6)
  1. ARIPIPRAZOLE [Suspect]
     Active Substance: ARIPIPRAZOLE
     Indication: Hallucination, auditory
     Dosage: TITRATED UP TO 20 MG DAILY
     Route: 065
  2. OLANZAPINE [Suspect]
     Active Substance: OLANZAPINE
     Indication: Hallucination, auditory
     Dosage: 10 MG DAILY
     Route: 065
  3. ZOLPIDEM [Suspect]
     Active Substance: ZOLPIDEM TARTRATE
     Indication: Insomnia
     Dosage: UNKNOWN
     Route: 065
  4. BUPRENORPHINE [Concomitant]
     Active Substance: BUPRENORPHINE
     Indication: Drug use disorder
     Dosage: UNKNOWN
     Route: 065
  5. PHENYTOIN [Concomitant]
     Active Substance: PHENYTOIN
     Indication: Psychotic disorder
     Dosage: 300 MG DAILY
     Route: 065
  6. VALPROIC ACID [Concomitant]
     Active Substance: VALPROIC ACID
     Indication: Psychotic disorder
     Dosage: 500 MG TWICE DAILY
     Route: 065

REACTIONS (1)
  - Treatment failure [Unknown]
